FAERS Safety Report 8109213-9 (Version None)
Quarter: 2012Q1

REPORT INFORMATION
  Report Type: 
  Country: None (occurrence: None)
  Receive Date: 20120202
  Receipt Date: 20120125
  Transmission Date: 20120608
  Serious: Yes (Hospitalization, Other)
  Sender: FDA-Public Use
  Company Number: US-PURDUE-USA-2011-0078163

PATIENT
  Sex: Male

DRUGS (1)
  1. OXYCONTIN [Suspect]
     Indication: PAIN

REACTIONS (6)
  - HOSPITALISATION [None]
  - CRYING [None]
  - PAIN [None]
  - TRANSPLANT FAILURE [None]
  - DEPRESSION [None]
  - MENTAL DISORDER [None]
